FAERS Safety Report 8576153-0 (Version None)
Quarter: 2012Q3

REPORT INFORMATION
  Report Type: 
  Country: None (occurrence: None)
  Receive Date: 20120725
  Receipt Date: 20120710
  Transmission Date: 20120928
  Serious: Yes (Life-Threatening, Hospitalization)
  Sender: FDA-Public Use
  Company Number: 2012SGN00308

PATIENT
  Age: 45 Year
  Sex: Female

DRUGS (2)
  1. ADCETRIS [Suspect]
     Indication: NON-HODGKIN'S LYMPHOMA
     Dosage: 1.8 MG/KG, Q21D, INTRAVENOUS ; 150 MG, Q21D, INTRAVENOUS
     Route: 042
     Dates: start: 20120509, end: 20120620
  2. ADCETRIS [Suspect]
     Indication: NON-HODGKIN'S LYMPHOMA
     Dosage: 1.8 MG/KG, Q21D, INTRAVENOUS ; 150 MG, Q21D, INTRAVENOUS
     Route: 042
     Dates: start: 20120103, end: 20120221

REACTIONS (1)
  - PULMONARY ALVEOLAR HAEMORRHAGE [None]
